FAERS Safety Report 10576422 (Version 1)
Quarter: 2014Q4

REPORT INFORMATION
  Report Type: Spontaneous
  Country: US (occurrence: None)
  Receive Date: 20141110
  Receipt Date: 20141110
  Transmission Date: 20150529
  Serious: Yes (Other)
  Sender: FDA-Public Use
  Company Number: None

PATIENT
  Age: 69 Year
  Sex: Male

DRUGS (1)
  1. AMLODIPINE [Suspect]
     Active Substance: AMLODIPINE BESYLATE
     Indication: HYPERTENSION
     Dosage: 1 PILL?ONCE DAILY?TAKEN BY MOUTH
     Route: 048
     Dates: start: 20141010, end: 20141104

REACTIONS (11)
  - Palpitations [None]
  - Lacrimation increased [None]
  - Joint swelling [None]
  - Eye irritation [None]
  - Peripheral swelling [None]
  - Cardiac flutter [None]
  - Fatigue [None]
  - Headache [None]
  - Gingival swelling [None]
  - Somnolence [None]
  - Dizziness [None]

NARRATIVE: CASE EVENT DATE: 20141104
